FAERS Safety Report 7541378-X (Version None)
Quarter: 2011Q2

REPORT INFORMATION
  Report Type: 
  Country: None (occurrence: None)
  Receive Date: 20110613
  Receipt Date: 20110603
  Transmission Date: 20111010
  Serious: Yes (Hospitalization)
  Sender: FDA-Public Use
  Company Number: US-BIOGENIDEC-2011BI007529

PATIENT
  Sex: Female

DRUGS (2)
  1. AVONEX [Suspect]
     Route: 030
  2. AVONEX [Suspect]
     Indication: MULTIPLE SCLEROSIS
     Route: 030
     Dates: start: 20000601

REACTIONS (5)
  - INJECTION SITE CELLULITIS [None]
  - SEPSIS [None]
  - HYPOTENSION [None]
  - INJECTION SITE ABSCESS [None]
  - GASTROINTESTINAL ULCER HAEMORRHAGE [None]
